FAERS Safety Report 19117627 (Version 1)
Quarter: 2021Q2

REPORT INFORMATION
  Report Type: Report from Study
  Country: US (occurrence: US)
  Receive Date: 20210409
  Receipt Date: 20210409
  Transmission Date: 20210717
  Serious: Yes (Hospitalization, Other)
  Sender: FDA-Public Use
  Company Number: US-JNJFOC-20210101589

PATIENT
  Age: 79 Year
  Sex: Female
  Weight: 54.48 kg

DRUGS (13)
  1. LOSARTAN. [Concomitant]
     Active Substance: LOSARTAN
  2. SELEXIPAG [Suspect]
     Active Substance: SELEXIPAG
     Route: 048
  3. SELEXIPAG [Suspect]
     Active Substance: SELEXIPAG
     Route: 048
  4. TADALAFIL. [Concomitant]
     Active Substance: TADALAFIL
  5. SELEXIPAG [Suspect]
     Active Substance: SELEXIPAG
     Indication: PULMONARY ARTERIAL HYPERTENSION
     Route: 048
  6. MACITENTAN [Suspect]
     Active Substance: MACITENTAN
     Indication: PULMONARY ARTERIAL HYPERTENSION
     Route: 048
  7. VERAPAMIL [Concomitant]
     Active Substance: VERAPAMIL HYDROCHLORIDE
  8. ALBUTEROL [SALBUTAMOL] [Concomitant]
     Active Substance: ALBUTEROL
  9. PLAVIX [Concomitant]
     Active Substance: CLOPIDOGREL BISULFATE
     Dates: end: 20210101
  10. SELEXIPAG [Suspect]
     Active Substance: SELEXIPAG
     Route: 048
  11. OFEV [Concomitant]
     Active Substance: NINTEDANIB
  12. LASIX [Concomitant]
     Active Substance: FUROSEMIDE
  13. PREDNISONE. [Concomitant]
     Active Substance: PREDNISONE

REACTIONS (21)
  - Haematoma [Unknown]
  - Dyspnoea [Unknown]
  - Dizziness [Unknown]
  - Fatigue [Unknown]
  - Autoimmune disorder [Unknown]
  - Pain [Unknown]
  - Head discomfort [Unknown]
  - Insomnia [Unknown]
  - Tachycardia [Unknown]
  - Nausea [Unknown]
  - Hypotension [Unknown]
  - Decreased appetite [Unknown]
  - Productive cough [Unknown]
  - Headache [Unknown]
  - Chest pain [Unknown]
  - Renal failure [Unknown]
  - Cough [Unknown]
  - Pain in jaw [Unknown]
  - Constipation [Unknown]
  - Pain in extremity [Unknown]
  - Pruritus [Unknown]

NARRATIVE: CASE EVENT DATE: 20201230
